FAERS Safety Report 14284301 (Version 3)
Quarter: 2018Q2

REPORT INFORMATION
  Report Type: Spontaneous
  Country: US (occurrence: US)
  Receive Date: 20171214
  Receipt Date: 20180422
  Transmission Date: 20180711
  Serious: Yes (Hospitalization, Other)
  Sender: FDA-Public Use
  Company Number: US-APOTEX-2017AP022826

PATIENT
  Age: 58 Year
  Sex: Male

DRUGS (1)
  1. CEFTRIAXONE FOR INJECTION, USP [Suspect]
     Active Substance: CEFTRIAXONE
     Indication: DEVICE RELATED INFECTION
     Dosage: UNK
     Route: 042

REACTIONS (2)
  - Serum sickness-like reaction [Recovered/Resolved]
  - Pulmonary embolism [Unknown]
